FAERS Safety Report 4462820-7 (Version None)
Quarter: 2004Q3

REPORT INFORMATION
  Report Type: 
  Country: None (occurrence: None)
  Receive Date: 20040927
  Receipt Date: 20040910
  Transmission Date: 20050211
  Serious: Yes (Death, Hospitalization)
  Sender: FDA-Public Use
  Company Number: 2004-0007475

PATIENT
  Age: 63 Year
  Sex: Male

DRUGS (4)
  1. VIREAD (TENOFOVIR DISOPROXIL FUMARATE) [Suspect]
     Indication: HIV INFECTION
     Dosage: 300 MG, 1 IN 1 D
  2. DIDANOSINE EC (DIDANOSINE) [Suspect]
     Indication: HIV INFECTION
     Dosage: 400 MG, 1 IN 1 D
  3. LOPINAVIR (LOPINAVIR) [Concomitant]
  4. RITONAVIR [Concomitant]

REACTIONS (20)
  - ABDOMINAL INFECTION [None]
  - BLOOD BILIRUBIN INCREASED [None]
  - BLOOD CREATININE INCREASED [None]
  - CATHETER RELATED INFECTION [None]
  - CD4 LYMPHOCYTES DECREASED [None]
  - DIARRHOEA [None]
  - DRUG INTERACTION [None]
  - DUODENAL ULCER HAEMORRHAGE [None]
  - HAEMOGLOBIN DECREASED [None]
  - HYPOTENSION [None]
  - KLEBSIELLA INFECTION [None]
  - LACTIC ACIDOSIS [None]
  - METABOLIC ACIDOSIS [None]
  - OXYGEN SATURATION DECREASED [None]
  - PANCREATITIS [None]
  - PHARYNGOLARYNGEAL PAIN [None]
  - RESPIRATORY DISTRESS [None]
  - RESPIRATORY FAILURE [None]
  - TREATMENT NONCOMPLIANCE [None]
  - WHITE BLOOD CELL COUNT INCREASED [None]
